FAERS Safety Report 6804784-4 (Version None)
Quarter: 2010Q2

REPORT INFORMATION
  Report Type: 
  Country: None (occurrence: None)
  Receive Date: 20100628
  Receipt Date: 20070514
  Transmission Date: 20101027
  Serious: No
  Sender: FDA-Public Use
  Company Number: US-PFIZER INC-2007038118

PATIENT

DRUGS (3)
  1. GEODON [Suspect]
  2. LYRICA [Concomitant]
     Indication: CONVULSION
  3. ZONEGRAN [Concomitant]
     Indication: CONVULSION

REACTIONS (1)
  - NO ADVERSE EVENT [None]
